FAERS Safety Report 11146570 (Version 8)
Quarter: 2017Q1

REPORT INFORMATION
  Report Type: Spontaneous
  Country: US (occurrence: US)
  Receive Date: 20150528
  Receipt Date: 20170103
  Transmission Date: 20170428
  Serious: Yes (Other)
  Sender: FDA-Public Use
  Company Number: US-TEVA-565903USA

PATIENT
  Age: 47 Year
  Sex: Female
  Weight: 65.83 kg

DRUGS (11)
  1. MYCOPHENOLATE MOFETIL. [Suspect]
     Active Substance: MYCOPHENOLATE MOFETIL
     Indication: SYSTEMIC LUPUS ERYTHEMATOSUS
     Dosage: 2000 MILLIGRAM DAILY;
     Route: 048
     Dates: start: 201307
  2. B COMPLEX-VITAMIN B12 [Concomitant]
     Route: 048
  3. IRON-VITAMIN B COMPLEX [Concomitant]
     Dosage: 2 TSP
     Route: 048
  4. VITAMIN E [Concomitant]
     Active Substance: .ALPHA.-TOCOPHEROL
     Route: 048
  5. ERGOCALCIFEROL. [Concomitant]
     Active Substance: ERGOCALCIFEROL
     Route: 048
  6. FUROSEMIDE. [Concomitant]
     Active Substance: FUROSEMIDE
     Indication: HYPERTENSION
     Dosage: 80 MILLIGRAM DAILY;
     Route: 048
  7. CALCIUM 600NITAMIN 0 600-200 MG-UNIT [Concomitant]
     Indication: VITAMIN D DECREASED
     Route: 048
  8. DAPSONE. [Concomitant]
     Active Substance: DAPSONE
     Dosage: 100 MILLIGRAM DAILY;
     Route: 048
  9. CARVEDILOL. [Concomitant]
     Active Substance: CARVEDILOL
     Indication: HYPERTENSION
     Dosage: 12.5 MILLIGRAM DAILY;
     Route: 048
  10. HYDROXYCHLOROQUINE [Concomitant]
     Active Substance: HYDROXYCHLOROQUINE
     Dosage: 400 MILLIGRAM DAILY;
     Route: 048
  11. PANTOPRAZOLE EC [Concomitant]
     Dosage: 40 MILLIGRAM DAILY;
     Route: 048

REACTIONS (14)
  - Hypertension [Unknown]
  - Product taste abnormal [Unknown]
  - Breast cancer [Not Recovered/Not Resolved]
  - Visual acuity reduced [Unknown]
  - Fatigue [Unknown]
  - Urine abnormality [Unknown]
  - Depressed mood [Not Recovered/Not Resolved]
  - Renal impairment [Not Recovered/Not Resolved]
  - Alopecia [Not Recovered/Not Resolved]
  - Product use issue [Unknown]
  - Dysgeusia [Not Recovered/Not Resolved]
  - Decreased appetite [Unknown]
  - Weight decreased [Not Recovered/Not Resolved]
  - Asthenia [Unknown]

NARRATIVE: CASE EVENT DATE: 201307
